FAERS Safety Report 5354601-7 (Version None)
Quarter: 2007Q2

REPORT INFORMATION
  Report Type: 
  Country: None (occurrence: None)
  Receive Date: 20070611
  Receipt Date: 20070601
  Transmission Date: 20071010
  Serious: Yes (Other)
  Sender: FDA-Public Use
  Company Number: 2007SP010794

PATIENT
  Age: 40 Year
  Sex: Male

DRUGS (2)
  1. PEG-INTRON [Suspect]
     Indication: HEPATITIS C
     Dosage: 100 MCG;QW;SC
     Route: 058
     Dates: start: 20061222, end: 20070501
  2. REBETOL [Suspect]
     Indication: HEPATITIS C
     Dosage: 800 MG; PO
     Route: 048
     Dates: start: 20061222, end: 20070501

REACTIONS (1)
  - SCHIZOPHRENIFORM DISORDER [None]
